FAERS Safety Report 11444702 (Version 1)
Quarter: 2015Q3

REPORT INFORMATION
  Report Type: Spontaneous
  Country: US (occurrence: None)
  Receive Date: 20150831
  Receipt Date: 20150831
  Transmission Date: 20151125
  Serious: Yes (Other)
  Sender: FDA-Public Use
  Company Number: None

PATIENT
  Age: 3 Year
  Sex: Female
  Weight: 18.6 kg

DRUGS (1)
  1. MONTELUKAST [Suspect]
     Active Substance: MONTELUKAST SODIUM
     Indication: MULTIPLE ALLERGIES
     Dosage: ONE CHEWABLE ONCE DAILY TAKEN BY MOUTH
     Route: 048
     Dates: start: 20150706

REACTIONS (3)
  - Anger [None]
  - Personality change [None]
  - Aggression [None]

NARRATIVE: CASE EVENT DATE: 20150612
